FAERS Safety Report 5717475-8 (Version None)
Quarter: 2008Q2

REPORT INFORMATION
  Report Type: 
  Country: None (occurrence: None)
  Receive Date: 20080424
  Receipt Date: 20080424
  Transmission Date: 20081010
  Serious: Yes (Hospitalization)
  Sender: FDA-Public Use
  Company Number: None

PATIENT
  Sex: Male
  Weight: 86.5 kg

DRUGS (1)
  1. TEMOZOLOMIDE [Suspect]
     Dosage: 6150 MG

REACTIONS (3)
  - ADVERSE DRUG REACTION [None]
  - RENAL TUBULAR NECROSIS [None]
  - URINE OUTPUT INCREASED [None]
